FAERS Safety Report 12404056 (Version 1)
Quarter: 2016Q2

REPORT INFORMATION
  Report Type: Report from Study
  Country: FR (occurrence: FR)
  Receive Date: 20160525
  Receipt Date: 20160525
  Transmission Date: 20160815
  Serious: Yes (Hospitalization, Other)
  Sender: FDA-Public Use
  Company Number: FR-BAXTER-2016BAX026169

PATIENT
  Age: 37 Year
  Sex: Female
  Weight: 56 kg

DRUGS (21)
  1. TOPALGIC [Concomitant]
     Active Substance: TRAMADOL
     Indication: TUMOUR PAIN
     Route: 048
  2. RAPAMUNE [Suspect]
     Active Substance: SIROLIMUS
     Route: 048
     Dates: start: 20160411, end: 20160411
  3. METHOTREXATE SODIUM. [Suspect]
     Active Substance: METHOTREXATE SODIUM
     Indication: METASTASES TO BONE
     Route: 048
     Dates: start: 20160328
  4. ENDOXAN [Suspect]
     Active Substance: CYCLOPHOSPHAMIDE
     Indication: OSTEOSARCOMA
     Route: 048
     Dates: start: 20160325
  5. ENDOXAN [Suspect]
     Active Substance: CYCLOPHOSPHAMIDE
     Route: 048
     Dates: start: 20160408, end: 20160408
  6. METHOTREXATE SODIUM. [Suspect]
     Active Substance: METHOTREXATE SODIUM
     Route: 048
     Dates: start: 20160411, end: 20160411
  7. ZOLEDRONIC ACID [Suspect]
     Active Substance: ZOLEDRONIC ACID
     Indication: METASTASES TO BONE
  8. MACROGOL [Concomitant]
     Active Substance: POLYETHYLENE GLYCOLS
     Indication: PRODUCT USED FOR UNKNOWN INDICATION
     Route: 065
  9. RAPAMUNE [Suspect]
     Active Substance: SIROLIMUS
     Indication: NEOPLASM
     Dosage: FIRST DAY OF FIRST CYCLE
     Route: 048
     Dates: start: 20160318
  10. RAPAMUNE [Suspect]
     Active Substance: SIROLIMUS
     Indication: METASTASES TO BONE
     Route: 048
     Dates: start: 20160328
  11. ZOLEDRONIC ACID [Suspect]
     Active Substance: ZOLEDRONIC ACID
     Indication: NEOPLASM
     Dosage: FIRST DAY OF FIRST CYCLE
     Route: 042
     Dates: start: 20160319, end: 20160319
  12. ZOLEDRONIC ACID [Suspect]
     Active Substance: ZOLEDRONIC ACID
     Indication: OSTEOSARCOMA
  13. RAPAMUNE [Suspect]
     Active Substance: SIROLIMUS
     Indication: OSTEOSARCOMA
     Route: 048
     Dates: start: 20160407
  14. METHOTREXATE SODIUM. [Suspect]
     Active Substance: METHOTREXATE SODIUM
     Indication: NEOPLASM
     Dosage: FIRST DAY OF FIRST CYCLE
     Route: 048
     Dates: start: 20160318
  15. METHOTREXATE SODIUM. [Suspect]
     Active Substance: METHOTREXATE SODIUM
     Indication: OSTEOSARCOMA
     Route: 048
     Dates: start: 20160404
  16. ENDOXAN [Suspect]
     Active Substance: CYCLOPHOSPHAMIDE
     Indication: METASTASES TO BONE
     Route: 048
     Dates: start: 20160324
  17. RAPAMUNE [Suspect]
     Active Substance: SIROLIMUS
     Route: 048
     Dates: start: 20160408
  18. VOGALENE [Concomitant]
     Active Substance: METOPIMAZINE
     Indication: NAUSEA
     Route: 048
     Dates: start: 20160321
  19. MONOCRIXO [Concomitant]
     Active Substance: TRAMADOL HYDROCHLORIDE
     Indication: CONSTIPATION
     Route: 048
     Dates: start: 20160329
  20. ENDOXAN [Suspect]
     Active Substance: CYCLOPHOSPHAMIDE
     Indication: NEOPLASM
     Route: 048
     Dates: start: 20160318
  21. MOVICOL [Concomitant]
     Active Substance: POLYETHYLENE GLYCOL 3350\POTASSIUM CHLORIDE\SODIUM BICARBONATE\SODIUM CHLORIDE
     Indication: CONSTIPATION
     Route: 048

REACTIONS (3)
  - General physical health deterioration [Recovered/Resolved]
  - Ascites [Recovered/Resolved]
  - Disease progression [Unknown]

NARRATIVE: CASE EVENT DATE: 20160408
